FAERS Safety Report 25307623 (Version 1)
Quarter: 2025Q2

REPORT INFORMATION
  Report Type: Spontaneous
  Country: DE (occurrence: DE)
  Receive Date: 20250513
  Receipt Date: 20250513
  Transmission Date: 20250717
  Serious: Yes (Congenital Anomaly, Other)
  Sender: PFIZER
  Company Number: DE-EMB-M202004491-1

PATIENT
  Sex: Male
  Weight: 4.6 kg

DRUGS (5)
  1. PANTOPRAZOLE [Suspect]
     Active Substance: PANTOPRAZOLE
     Indication: Morning sickness
     Route: 064
  2. DIMENHYDRINATE [Suspect]
     Active Substance: DIMENHYDRINATE
     Indication: Morning sickness
     Route: 064
  3. OMEPRAZOLE [Suspect]
     Active Substance: OMEPRAZOLE
     Indication: Morning sickness
     Route: 064
  4. MECLIZINE HYDROCHLORIDE [Suspect]
     Active Substance: MECLIZINE HYDROCHLORIDE
     Indication: Morning sickness
     Route: 064
     Dates: start: 202004, end: 202005
  5. ACETAMINOPHEN [Concomitant]
     Active Substance: ACETAMINOPHEN
     Indication: Migraine
     Route: 064

REACTIONS (4)
  - Congenital eye disorder [Unknown]
  - Eyelid disorder [Unknown]
  - Renal fusion anomaly [Unknown]
  - Foetal exposure during pregnancy [Unknown]
